FAERS Safety Report 12518241 (Version 1)
Quarter: 2016Q2

REPORT INFORMATION
  Report Type: Report from Study
  Country: NL (occurrence: NL)
  Receive Date: 20160630
  Receipt Date: 20160630
  Transmission Date: 20160815
  Serious: Yes (Other)
  Sender: FDA-Public Use
  Company Number: NL-ABBVIE-16P-114-1664369-00

PATIENT
  Age: 71 Year
  Sex: Female

DRUGS (1)
  1. DUODOPA [Suspect]
     Active Substance: CARBIDOPA\LEVODOPA
     Indication: PARKINSON^S DISEASE
     Dosage: MORNING DOSE: 4.5CONTINOUS DOSE: 3.9EXTRA DOSE: 2.2NIGHT DOSE: 2.5
     Route: 050
     Dates: start: 20150401

REACTIONS (7)
  - Device dislocation [Unknown]
  - Musculoskeletal stiffness [Not Recovered/Not Resolved]
  - Drug effect variable [Not Recovered/Not Resolved]
  - Movement disorder [Not Recovered/Not Resolved]
  - Anaemia [Not Recovered/Not Resolved]
  - On and off phenomenon [Not Recovered/Not Resolved]
  - Fall [Not Recovered/Not Resolved]

NARRATIVE: CASE EVENT DATE: 20160625
